FAERS Safety Report 5953667-0 (Version None)
Quarter: 2008Q4

REPORT INFORMATION
  Report Type: 
  Country: None (occurrence: None)
  Receive Date: 20081114
  Receipt Date: 20081111
  Transmission Date: 20090506
  Serious: Yes (Other)
  Sender: FDA-Public Use
  Company Number: B0546194A

PATIENT
  Age: 53 Year

DRUGS (2)
  1. TYKERB [Suspect]
     Indication: ADENOCARCINOMA
     Dosage: 750MG PER DAY
     Route: 048
  2. CARBOPLATIN [Suspect]
     Indication: ADENOCARCINOMA
     Route: 042

REACTIONS (2)
  - MUSCLE SPASMS [None]
  - THROMBOCYTOPENIA [None]
